FAERS Safety Report 6657340-5 (Version None)
Quarter: 2010Q1

REPORT INFORMATION
  Report Type: 
  Country: None (occurrence: None)
  Receive Date: 20100319
  Receipt Date: 20090916
  Transmission Date: 20100710
  Serious: Yes (Other)
  Sender: FDA-Public Use
  Company Number: 2009SP019928

PATIENT
  Age: 61 Year
  Sex: Female

DRUGS (2)
  1. PEG-INTRON [Suspect]
     Indication: HEPATITIS C
     Dosage: 0.5 ML; SC : 72 MCG; SC
     Route: 058
     Dates: start: 20090624
  2. RIBASPHERE [Suspect]
     Indication: HEPATITIS C
     Dosage: 600 MG
     Dates: start: 20090624

REACTIONS (26)
  - ANXIETY [None]
  - ARRHYTHMIA [None]
  - ASTHENIA [None]
  - BACK PAIN [None]
  - CHEST PAIN [None]
  - DIZZINESS [None]
  - DRY EYE [None]
  - DRY MOUTH [None]
  - DYSPEPSIA [None]
  - DYSPNOEA [None]
  - ECZEMA [None]
  - EXTRASYSTOLES [None]
  - FATIGUE [None]
  - HAEMOGLOBIN DECREASED [None]
  - LUNG NEOPLASM [None]
  - MIGRAINE WITH AURA [None]
  - MUSCULOSKELETAL PAIN [None]
  - NASAL DRYNESS [None]
  - NECK PAIN [None]
  - NEUTROPHIL COUNT DECREASED [None]
  - PAIN IN JAW [None]
  - PALPITATIONS [None]
  - PULMONARY CONGESTION [None]
  - RASH [None]
  - RETINAL EXUDATES [None]
  - WHITE BLOOD CELL COUNT DECREASED [None]
